FAERS Safety Report 6580242-X (Version None)
Quarter: 2010Q1

REPORT INFORMATION
  Report Type: 
  Country: None (occurrence: None)
  Receive Date: 20100204
  Receipt Date: 20100122
  Transmission Date: 20100710
  Serious: Yes (Other)
  Sender: FDA-Public Use
  Company Number: 100119-0000060

PATIENT
  Age: 24 Week

DRUGS (1)
  1. INDOMETHACIN [Suspect]
     Indication: PATENT DUCTUS ARTERIOSUS
     Dosage: 0.1 MG/KG/2 DOSE

REACTIONS (1)
  - INTRAVENTRICULAR HAEMORRHAGE [None]
